FAERS Safety Report 4958350-6 (Version None)
Quarter: 2006Q1

REPORT INFORMATION
  Report Type: 
  Country: None (occurrence: None)
  Receive Date: 20060330
  Receipt Date: 20060324
  Transmission Date: 20060701
  Serious: Yes (Other)
  Sender: FDA-Public Use
  Company Number: ES-AVENTIS-200613077GDDC

PATIENT
  Age: 26 Year
  Sex: Female

DRUGS (3)
  1. LANTUS [Suspect]
     Indication: DIABETES MELLITUS
     Route: 058
     Dates: start: 20060323
  2. NOVORAPID [Concomitant]
     Indication: DIABETES MELLITUS
  3. NOVOMIX [Concomitant]
     Indication: DIABETES MELLITUS

REACTIONS (1)
  - MONOPLEGIA [None]
